FAERS Safety Report 8127188-3 (Version None)
Quarter: 2012Q1

REPORT INFORMATION
  Report Type: 
  Country: None (occurrence: None)
  Receive Date: 20120210
  Receipt Date: 20120201
  Transmission Date: 20120608
  Serious: Yes (Hospitalization, Other)
  Sender: FDA-Public Use
  Company Number: US-BAYER-201033136NA

PATIENT
  Age: 48 Year
  Sex: Female
  Weight: 86.168 kg

DRUGS (2)
  1. YAZ [Suspect]
  2. YASMIN [Suspect]
     Indication: PREMENSTRUAL SYNDROME
     Route: 048

REACTIONS (5)
  - CEREBRAL HAEMORRHAGE [None]
  - INTRACRANIAL VENOUS SINUS THROMBOSIS [None]
  - ANXIETY [None]
  - CEREBROVASCULAR ACCIDENT [None]
  - DEPRESSION [None]
